FAERS Safety Report 21985078 (Version 2)
Quarter: 2023Q4

REPORT INFORMATION
  Report Type: Spontaneous
  Country: CA (occurrence: CA)
  Receive Date: 20230213
  Receipt Date: 20231012
  Transmission Date: 20240110
  Serious: Yes (Hospitalization)
  Sender: FDA-Public Use
  Company Number: CA-Covis Pharma Europe B.V.-2023COV00324

PATIENT
  Age: 48 Year
  Sex: Female

DRUGS (44)
  1. ALVESCO [Suspect]
     Active Substance: CICLESONIDE
  2. ALVESCO [Suspect]
     Active Substance: CICLESONIDE
  3. AMLODIPINE BESYLATE [Suspect]
     Active Substance: AMLODIPINE BESYLATE
     Indication: Hypertension
  4. BILASTINE [Suspect]
     Active Substance: BILASTINE
  5. BILASTINE [Suspect]
     Active Substance: BILASTINE
  6. LORAZEPAM [Suspect]
     Active Substance: LORAZEPAM
     Indication: Asthma
  7. LORAZEPAM [Suspect]
     Active Substance: LORAZEPAM
  8. OMALIZUMAB [Suspect]
     Active Substance: OMALIZUMAB
     Indication: Asthma
  9. OMALIZUMAB [Suspect]
     Active Substance: OMALIZUMAB
  10. OMALIZUMAB [Suspect]
     Active Substance: OMALIZUMAB
  11. OMALIZUMAB [Suspect]
     Active Substance: OMALIZUMAB
  12. OMALIZUMAB [Suspect]
     Active Substance: OMALIZUMAB
  13. OMALIZUMAB [Suspect]
     Active Substance: OMALIZUMAB
  14. OMALIZUMAB [Suspect]
     Active Substance: OMALIZUMAB
  15. OMALIZUMAB [Suspect]
     Active Substance: OMALIZUMAB
  16. OMALIZUMAB [Suspect]
     Active Substance: OMALIZUMAB
  17. OMALIZUMAB [Suspect]
     Active Substance: OMALIZUMAB
  18. OMALIZUMAB [Suspect]
     Active Substance: OMALIZUMAB
  19. OMALIZUMAB [Suspect]
     Active Substance: OMALIZUMAB
  20. OMALIZUMAB [Suspect]
     Active Substance: OMALIZUMAB
  21. OMALIZUMAB [Suspect]
     Active Substance: OMALIZUMAB
  22. OMALIZUMAB [Suspect]
     Active Substance: OMALIZUMAB
  23. OMALIZUMAB [Suspect]
     Active Substance: OMALIZUMAB
  24. OMALIZUMAB [Suspect]
     Active Substance: OMALIZUMAB
  25. OMALIZUMAB [Suspect]
     Active Substance: OMALIZUMAB
  26. OMALIZUMAB [Suspect]
     Active Substance: OMALIZUMAB
  27. OMALIZUMAB [Suspect]
     Active Substance: OMALIZUMAB
  28. OMALIZUMAB [Suspect]
     Active Substance: OMALIZUMAB
  29. OMALIZUMAB [Suspect]
     Active Substance: OMALIZUMAB
  30. OMALIZUMAB [Suspect]
     Active Substance: OMALIZUMAB
  31. OMALIZUMAB [Suspect]
     Active Substance: OMALIZUMAB
  32. SALMETEROL XINAFOATE [Suspect]
     Active Substance: SALMETEROL XINAFOATE
  33. SALMETEROL XINAFOATE [Suspect]
     Active Substance: SALMETEROL XINAFOATE
  34. SINGULAIR [Suspect]
     Active Substance: MONTELUKAST SODIUM
  35. SINGULAIR [Suspect]
     Active Substance: MONTELUKAST SODIUM
  36. ZOPICLONE [Suspect]
     Active Substance: ZOPICLONE
  37. ATROVENT [Concomitant]
     Active Substance: IPRATROPIUM BROMIDE
  38. MOMETASONE [Concomitant]
     Active Substance: MOMETASONE
  39. PANTOPRAZOLE SODIUM [Concomitant]
     Active Substance: PANTOPRAZOLE SODIUM
  40. PREDNISONE [Concomitant]
     Active Substance: PREDNISONE
  41. PULMICORT TURBUHALER [Concomitant]
     Active Substance: BUDESONIDE
  42. SODIUM BICARBONATE\SODIUM CHLORIDE [Concomitant]
     Active Substance: SODIUM BICARBONATE\SODIUM CHLORIDE
  43. ALBUTEROL [Concomitant]
     Active Substance: ALBUTEROL
  44. ALBUTEROL [Concomitant]
     Active Substance: ALBUTEROL

REACTIONS (15)
  - Dyspnoea [Not Recovered/Not Resolved]
  - Asthma [Not Recovered/Not Resolved]
  - Cough [Not Recovered/Not Resolved]
  - Drug hypersensitivity [Not Recovered/Not Resolved]
  - Dyspnoea [Not Recovered/Not Resolved]
  - Hypertension [Not Recovered/Not Resolved]
  - Inappropriate schedule of product administration [Not Recovered/Not Resolved]
  - Injection site pain [Not Recovered/Not Resolved]
  - Lung disorder [Not Recovered/Not Resolved]
  - Malaise [Not Recovered/Not Resolved]
  - Middle insomnia [Not Recovered/Not Resolved]
  - Obstructive airways disorder [Not Recovered/Not Resolved]
  - Product dose omission issue [Not Recovered/Not Resolved]
  - Sinusitis [Not Recovered/Not Resolved]
  - Wheezing [Not Recovered/Not Resolved]
